FAERS Safety Report 5045105-X (Version None)
Quarter: 2006Q3

REPORT INFORMATION
  Report Type: 
  Country: None (occurrence: None)
  Receive Date: 20060707
  Receipt Date: 20060705
  Transmission Date: 20061208
  Serious: Yes (Life-Threatening, Hospitalization)
  Sender: FDA-Public Use
  Company Number: RU-SANOFI-SYNTHELABO-F01200601589

PATIENT
  Sex: Female

DRUGS (4)
  1. AVASTIN [Suspect]
     Route: 042
     Dates: start: 20060605, end: 20060605
  2. LEUCOVORIN CALCIUM [Suspect]
     Route: 042
     Dates: start: 20060203, end: 20060204
  3. FLUOROURACIL [Suspect]
     Dosage: 400MG/M2 IV BOLUS AND 600MG/M2 CONTINUOUS INFUSION Q2W
     Route: 042
     Dates: start: 20060203, end: 20060204
  4. OXALIPLATIN [Suspect]
     Indication: COLON CANCER
     Route: 042
     Dates: start: 20060203, end: 20060203

REACTIONS (1)
  - MYOCARDIAL INFARCTION [None]
